FAERS Safety Report 4765046-2 (Version None)
Quarter: 2005Q3

REPORT INFORMATION
  Report Type: 
  Country: None (occurrence: None)
  Receive Date: 20050907
  Receipt Date: 20050815
  Transmission Date: 20060218
  Serious: Yes (Death, Life-Threatening)
  Sender: FDA-Public Use
  Company Number: PAR_0179_2005

PATIENT
  Age: 37 Year
  Sex: Male

DRUGS (1)
  1. FLUOXETINE [Suspect]
     Dosage: 12 G ONCE, PO
     Route: 048

REACTIONS (9)
  - BRADYCARDIA [None]
  - CARDIAC ARREST [None]
  - DRUG INEFFECTIVE [None]
  - GRAND MAL CONVULSION [None]
  - INTENTIONAL MISUSE [None]
  - OVERDOSE [None]
  - PROCEDURAL COMPLICATION [None]
  - SINUS TACHYCARDIA [None]
  - VENTRICULAR FIBRILLATION [None]
